FAERS Safety Report 5868691-6 (Version None)
Quarter: 2008Q3

REPORT INFORMATION
  Report Type: 
  Country: None (occurrence: None)
  Receive Date: 20080903
  Receipt Date: 20080827
  Transmission Date: 20090109
  Serious: Yes (Disabling, Other)
  Sender: FDA-Public Use
  Company Number: PHHY2008FR19487

PATIENT
  Sex: Female

DRUGS (12)
  1. ZOMETA [Suspect]
     Indication: METASTASES TO BONE
     Dosage: UNK
     Route: 042
     Dates: start: 20060901, end: 20080301
  2. ZOMETA [Suspect]
     Indication: METASTASES TO LIVER
  3. TAXOTERE [Concomitant]
     Dosage: UNK
     Dates: start: 20060901
  4. AVASTIN [Concomitant]
     Dosage: UNK
     Dates: start: 20060901
  5. XELODA [Concomitant]
     Dosage: UNK
     Dates: start: 20070701
  6. DURAGESIC-100 [Concomitant]
  7. LYRICA [Concomitant]
     Dosage: 100 MG, BID
  8. XANAX [Concomitant]
     Dosage: 0.25 MG, QD
  9. MOPRAL [Concomitant]
     Dosage: 20 MG, QD
  10. ELISOR [Concomitant]
     Dosage: 20 MG, QD
  11. MORPHINE [Concomitant]
     Dosage: 10 MG, BID
  12. ARIXTRA [Concomitant]
     Dosage: 2.5 MG, QD

REACTIONS (2)
  - MOUTH ULCERATION [None]
  - OSTEONECROSIS [None]
